FAERS Safety Report 9208911 (Version 1)
Quarter: 2013Q1

REPORT INFORMATION
  Report Type: Spontaneous
  Country: US (occurrence: None)
  Receive Date: 20120817
  Receipt Date: 20120817
  Transmission Date: 20140127
  Serious: Yes (Other)
  Sender: FDA-Public Use
  Company Number: ADR-2011-11347

PATIENT
  Age: 42 Year
  Sex: Male

DRUGS (6)
  1. LIORESAL INTRATHECAL (BACLOFEN INJECTION) 2000 MCG/ML [Suspect]
     Indication: MULTIPLE SCLEROSIS
  2. LIORESAL INTRATHECAL (BACLOFEN INJECTION) 2000 MCG/ML [Suspect]
     Indication: MUSCLE SPASTICITY
  3. HYDROMORPHONE [Concomitant]
  4. CLONIDINE [Concomitant]
  5. BUPIVACAINE [Concomitant]
  6. PRIALT [Concomitant]

REACTIONS (2)
  - Muscle spasms [None]
  - Pain [None]
